FAERS Safety Report 12649610 (Version 1)
Quarter: 2016Q3

REPORT INFORMATION
  Report Type: Other
  Country: US (occurrence: US)
  Receive Date: 20160812
  Receipt Date: 20160812
  Transmission Date: 20161109
  Serious: Yes (Other)
  Sender: FDA-Public Use
  Company Number: US-COL_23356_2016

PATIENT
  Sex: Male

DRUGS (1)
  1. SPEED STICK DEODORANT UNSPECIFIED [Suspect]
     Active Substance: COSMETICS
     Indication: PRODUCT USED FOR UNKNOWN INDICATION
     Dosage: NI/TWO TIMES DAILY/
     Route: 061
     Dates: start: 201401

REACTIONS (8)
  - Keloid scar [Recovering/Resolving]
  - Application site cyst [Recovering/Resolving]
  - Application site abscess [Recovering/Resolving]
  - Application site inflammation [Recovering/Resolving]
  - Application site scar [Recovering/Resolving]
  - Application site pain [Recovering/Resolving]
  - Application site reaction [Recovering/Resolving]
  - Application site swelling [Recovered/Resolved]
